FAERS Safety Report 4925245-3 (Version None)
Quarter: 2006Q1

REPORT INFORMATION
  Report Type: 
  Country: None (occurrence: None)
  Receive Date: 20060222
  Receipt Date: 20060222
  Transmission Date: 20060701
  Serious: No
  Sender: FDA-Public Use
  Company Number: None

PATIENT
  Age: 54 Year
  Sex: Male

DRUGS (19)
  1. ALEMTUZUMAB [Suspect]
     Dosage: 30 MG IV X 1 DOSE
     Route: 042
  2. MYCOPHENOLATE [Concomitant]
  3. DEXAMETHASONE [Concomitant]
  4. PREDNISONE [Concomitant]
  5. TRIMETHOPRIM + SULFAMETHOXAZOLE [Concomitant]
  6. CLOTRIMAZOLE [Concomitant]
  7. VALGANCYCLOVIR [Concomitant]
  8. URSODIOL [Concomitant]
  9. OXYCODONE [Concomitant]
  10. PANTOPRAZOLE [Concomitant]
  11. ZOLPIDEM [Concomitant]
  12. DROPERIDOL [Concomitant]
  13. LABETALOL HCL [Concomitant]
  14. HYDROMORPHONE HCL [Concomitant]
  15. CLONIDINE [Concomitant]
  16. FLUDROCORTISONE [Concomitant]
  17. METOPROLOL [Concomitant]
  18. ALPROSTADIL [Concomitant]
  19. FUROSEMIDE [Concomitant]

REACTIONS (11)
  - ACUTE RESPIRATORY DISTRESS SYNDROME [None]
  - BACTERIAL SEPSIS [None]
  - BLASTOMYCOSIS [None]
  - COMPLICATIONS OF TRANSPLANTED LIVER [None]
  - CYTOMEGALOVIRUS VIRAEMIA [None]
  - DECUBITUS ULCER [None]
  - FUNGAL SEPSIS [None]
  - HAEMODIALYSIS [None]
  - INFECTION IN AN IMMUNOCOMPROMISED HOST [None]
  - LUNG INFECTION [None]
  - RENAL FAILURE [None]
